FAERS Safety Report 12942977 (Version 1)
Quarter: 2016Q4

REPORT INFORMATION
  Report Type: Spontaneous
  Country: TW (occurrence: TW)
  Receive Date: 20161115
  Receipt Date: 20161115
  Transmission Date: 20170207
  Serious: Yes (Other)
  Sender: FDA-Public Use
  Company Number: TW-SA-2016SA204350

PATIENT
  Age: 42 Year
  Sex: Female

DRUGS (1)
  1. CEREZYME [Suspect]
     Active Substance: IMIGLUCERASE
     Indication: GAUCHER^S DISEASE
     Dosage: DOSE: 6 VIALS
     Route: 042

REACTIONS (2)
  - Somnolence [Unknown]
  - Epilepsy [Unknown]

NARRATIVE: CASE EVENT DATE: 20161107
